FAERS Safety Report 25840592 (Version 1)
Quarter: 2025Q3

REPORT INFORMATION
  Report Type: Spontaneous
  Country: US (occurrence: US)
  Receive Date: 20250924
  Receipt Date: 20250924
  Transmission Date: 20251021
  Serious: Yes (Other)
  Sender: MYLAN
  Company Number: US-MYLANLABS-2025M1079876

PATIENT
  Age: 71 Year
  Sex: Male

DRUGS (24)
  1. METFORMIN [Suspect]
     Active Substance: METFORMIN HYDROCHLORIDE
     Indication: Diabetes mellitus
     Dosage: 2000 MILLIGRAM, QD
  2. METFORMIN [Suspect]
     Active Substance: METFORMIN HYDROCHLORIDE
     Dosage: 2000 MILLIGRAM, QD
     Route: 065
  3. METFORMIN [Suspect]
     Active Substance: METFORMIN HYDROCHLORIDE
     Dosage: 2000 MILLIGRAM, QD
     Route: 065
  4. METFORMIN [Suspect]
     Active Substance: METFORMIN HYDROCHLORIDE
     Dosage: 2000 MILLIGRAM, QD
  5. DULAGLUTIDE [Suspect]
     Active Substance: DULAGLUTIDE
     Indication: Diabetes mellitus
     Dosage: 3 MILLIGRAM, QW
  6. DULAGLUTIDE [Suspect]
     Active Substance: DULAGLUTIDE
     Dosage: 3 MILLIGRAM, QW
     Route: 065
  7. DULAGLUTIDE [Suspect]
     Active Substance: DULAGLUTIDE
     Dosage: 3 MILLIGRAM, QW
     Route: 065
  8. DULAGLUTIDE [Suspect]
     Active Substance: DULAGLUTIDE
     Dosage: 3 MILLIGRAM, QW
  9. INSULIN NOS [Suspect]
     Active Substance: INSULIN NOS
     Indication: Diabetes mellitus
     Dosage: UNK, QD (RECEIVED 210 UNITS)
  10. INSULIN NOS [Suspect]
     Active Substance: INSULIN NOS
     Dosage: UNK, QD (RECEIVED 210 UNITS)
  11. INSULIN NOS [Suspect]
     Active Substance: INSULIN NOS
     Dosage: UNK, QD (RECEIVED 210 UNITS)
     Route: 065
  12. INSULIN NOS [Suspect]
     Active Substance: INSULIN NOS
     Dosage: UNK, QD (RECEIVED 210 UNITS)
     Route: 065
  13. INSULIN NOS [Suspect]
     Active Substance: INSULIN NOS
  14. INSULIN NOS [Suspect]
     Active Substance: INSULIN NOS
  15. INSULIN NOS [Suspect]
     Active Substance: INSULIN NOS
     Route: 065
  16. INSULIN NOS [Suspect]
     Active Substance: INSULIN NOS
     Route: 065
  17. JARDIANCE [Suspect]
     Active Substance: EMPAGLIFLOZIN
     Indication: Diabetes mellitus
  18. JARDIANCE [Suspect]
     Active Substance: EMPAGLIFLOZIN
     Route: 065
  19. JARDIANCE [Suspect]
     Active Substance: EMPAGLIFLOZIN
     Route: 065
  20. JARDIANCE [Suspect]
     Active Substance: EMPAGLIFLOZIN
  21. Phentermine;Topiramate [Concomitant]
     Indication: Obesity
  22. Phentermine;Topiramate [Concomitant]
     Route: 065
  23. Phentermine;Topiramate [Concomitant]
     Route: 065
  24. Phentermine;Topiramate [Concomitant]

REACTIONS (1)
  - Drug ineffective [Unknown]
